FAERS Safety Report 13824312 (Version 2)
Quarter: 2017Q3

REPORT INFORMATION
  Report Type: Spontaneous
  Country: AU (occurrence: AU)
  Receive Date: 20170802
  Receipt Date: 20170811
  Transmission Date: 20171127
  Serious: Yes (Death, Other)
  Sender: FDA-Public Use
  Company Number: AU-SA-2017SA135783

PATIENT
  Age: 77 Year
  Sex: Male

DRUGS (9)
  1. AMIKACIN [Suspect]
     Active Substance: AMIKACIN
     Indication: DISSEMINATED BACILLUS CALMETTE-GUERIN INFECTION
     Dosage: AMIKACIN WAS CEASED ON DAY 27 DUE TO HEARING LOSS
     Route: 065
  2. RIFAMPICIN [Concomitant]
     Active Substance: RIFAMPIN
     Indication: DISSEMINATED BACILLUS CALMETTE-GUERIN INFECTION
  3. LINEZOLID. [Concomitant]
     Active Substance: LINEZOLID
     Indication: DISSEMINATED BACILLUS CALMETTE-GUERIN INFECTION
     Dosage: LINEZOLID WAS CEASED ON DAY 15
     Route: 065
  4. BCG FOR IMMUNOTHERAPY [Suspect]
     Active Substance: BACILLUS CALMETTE-GUERIN ANTIGEN, UNSPECIFIED SUBSTRAIN
     Indication: BLADDER CANCER
     Route: 043
     Dates: start: 201303, end: 201303
  5. DEXAMETHASONE. [Concomitant]
     Active Substance: DEXAMETHASONE
     Indication: DISSEMINATED BACILLUS CALMETTE-GUERIN INFECTION
  6. BCG FOR IMMUNOTHERAPY [Suspect]
     Active Substance: BACILLUS CALMETTE-GUERIN ANTIGEN, UNSPECIFIED SUBSTRAIN
     Indication: BLADDER CANCER
     Route: 043
     Dates: start: 201303, end: 201303
  7. BCG FOR IMMUNOTHERAPY [Suspect]
     Active Substance: BACILLUS CALMETTE-GUERIN ANTIGEN, UNSPECIFIED SUBSTRAIN
     Indication: BLADDER CANCER
     Route: 043
     Dates: start: 201308, end: 201308
  8. ETHAMBUTOL [Concomitant]
     Active Substance: ETHAMBUTOL HYDROCHLORIDE
     Indication: DISSEMINATED BACILLUS CALMETTE-GUERIN INFECTION
  9. MOXIFLOXACIN. [Concomitant]
     Active Substance: MOXIFLOXACIN
     Indication: DISSEMINATED BACILLUS CALMETTE-GUERIN INFECTION

REACTIONS (10)
  - Pyrexia [Fatal]
  - Spleen tuberculosis [Fatal]
  - Tuberculosis of central nervous system [Fatal]
  - Cardiac arrest [Fatal]
  - Night sweats [Fatal]
  - Confusional state [Fatal]
  - Asthenia [Fatal]
  - Hepatic enzyme abnormal [Recovered/Resolved]
  - Disseminated Bacillus Calmette-Guerin infection [Fatal]
  - Deafness [Unknown]

NARRATIVE: CASE EVENT DATE: 201507
